FAERS Safety Report 12724311 (Version 1)
Quarter: 2016Q3

REPORT INFORMATION
  Report Type: Other
  Country: US (occurrence: US)
  Receive Date: 20160908
  Receipt Date: 20160908
  Transmission Date: 20161109
  Serious: No
  Sender: FDA-Public Use
  Company Number: US-COL_22573_2016

PATIENT
  Sex: Female

DRUGS (1)
  1. COLGATE TOTAL GUM DEFENSE [Suspect]
     Active Substance: SODIUM FLUORIDE\TRICLOSAN
     Indication: PRODUCT USED FOR UNKNOWN INDICATION
     Dosage: COVERED THE WHOLE HEAD/BID/
     Route: 048
     Dates: start: 201603, end: 20160405

REACTIONS (4)
  - Product physical issue [Not Recovered/Not Resolved]
  - Stomatitis [Not Recovered/Not Resolved]
  - Oral mucosa erosion [Not Recovered/Not Resolved]
  - Tooth disorder [Not Recovered/Not Resolved]

NARRATIVE: CASE EVENT DATE: 201603
